FAERS Safety Report 22014027 (Version 1)
Quarter: 2023Q1

REPORT INFORMATION
  Report Type: Report from Study
  Country: IL (occurrence: IL)
  Receive Date: 20230221
  Receipt Date: 20230221
  Transmission Date: 20230418
  Serious: Yes (Hospitalization)
  Sender: FDA-Public Use
  Company Number: IL-ABBVIE-4313578

PATIENT
  Age: 68 Year
  Sex: Male

DRUGS (4)
  1. CARBIDOPA\LEVODOPA [Suspect]
     Active Substance: CARBIDOPA\LEVODOPA
     Indication: Parkinson^s disease
     Dosage: MORNING DOSAGE(ML) 12.0, CONTINUOUS DOSAGE (ML/H) 3.0 , EXTRA DOSAGE (ML) 1.5
     Route: 050
     Dates: start: 20130714
  2. CARBIDOPA\LEVODOPA [Suspect]
     Active Substance: CARBIDOPA\LEVODOPA
  3. Normalax (Macrogol 3350) [Concomitant]
     Indication: Constipation
  4. Avilac [Concomitant]
     Indication: Constipation

REACTIONS (2)
  - Hypotension [Recovered/Resolved]
  - Constipation [Unknown]

NARRATIVE: CASE EVENT DATE: 20230201
